FAERS Safety Report 4567117-2 (Version None)
Quarter: 2005Q1

REPORT INFORMATION
  Report Type: 
  Country: None (occurrence: None)
  Receive Date: 20050201
  Receipt Date: 20040803
  Transmission Date: 20050727
  Serious: Yes (Death, Life-Threatening, Hospitalization)
  Sender: FDA-Public Use
  Company Number: US-SANOFISYNTHELABO-A03200402598

PATIENT
  Age: 53 Year
  Sex: Male

DRUGS (13)
  1. FUROSEMIDE [Suspect]
     Indication: HYPERTENSION
     Dosage: UNK
     Route: 065
     Dates: end: 20040620
  2. HUMALOG [Suspect]
     Indication: DIABETES MELLITUS
     Dosage: UNK
     Route: 058
     Dates: end: 20040701
  3. PLAVIX [Suspect]
     Indication: THROMBOSIS PROPHYLAXIS
     Dosage: UNK
     Route: 048
     Dates: end: 20040701
  4. STADOL [Concomitant]
     Dosage: UNK
     Route: 065
     Dates: start: 20030418, end: 20040620
  5. NEURONTIN [Concomitant]
     Dosage: UNK
     Route: 065
     Dates: start: 20030101, end: 20040620
  6. ISOSORBIDE [Concomitant]
     Dosage: UNK
     Route: 065
     Dates: end: 20040628
  7. SODIUM BICARBONATE [Concomitant]
     Dosage: UNK
     Route: 065
  8. TOPROL-XL [Concomitant]
     Dosage: UNK
     Route: 065
  9. ZAROXOLYN [Suspect]
     Indication: FLUID RETENTION
     Dosage: UNK
     Route: 065
     Dates: end: 20040623
  10. HUMALIN INSULIN [Suspect]
     Indication: DIABETES MELLITUS
     Dosage: UNK
     Route: 058
     Dates: end: 20040701
  11. MICARDIS [Suspect]
     Indication: DRUG USE FOR UNKNOWN INDICATION
     Dosage: UNK
     Route: 048
     Dates: start: 20030926, end: 20040620
  12. ZOLOFT [Suspect]
     Indication: DEPRESSION
     Dosage: UNK
     Route: 065
     Dates: end: 20040701
  13. COZAAR [Suspect]
     Indication: DRUG USE FOR UNKNOWN INDICATION
     Dosage: UNK
     Route: 065
     Dates: start: 20030926, end: 20040620

REACTIONS (19)
  - ANAEMIA [None]
  - ANOXIC ENCEPHALOPATHY [None]
  - ARTERIOVENOUS FISTULA OPERATION [None]
  - ASPIRATION [None]
  - BRADYARRHYTHMIA [None]
  - CARDIAC ARREST [None]
  - CARDIAC FAILURE CONGESTIVE [None]
  - COMPLICATIONS OF TRANSPLANTED KIDNEY [None]
  - GASTRITIS [None]
  - GRAFT THROMBOSIS [None]
  - HAEMODIALYSIS [None]
  - HYPOCALCAEMIA [None]
  - METABOLIC ACIDOSIS [None]
  - PNEUMONIA [None]
  - PSEUDOMONAS INFECTION [None]
  - RENAL FAILURE CHRONIC [None]
  - RESPIRATORY FAILURE [None]
  - SEPSIS [None]
  - STAPHYLOCOCCAL INFECTION [None]
